FAERS Safety Report 21056414 (Version 1)
Quarter: 2022Q3

REPORT INFORMATION
  Report Type: Spontaneous
  Country: US (occurrence: None)
  Receive Date: 20220707
  Receipt Date: 20220707
  Transmission Date: 20221026
  Serious: No
  Sender: FDA-Public Use
  Company Number: None

PATIENT
  Age: 53 Year
  Sex: Female

DRUGS (19)
  1. IBRANCE [Suspect]
     Active Substance: PALBOCICLIB
     Indication: Breast cancer female
     Dosage: FREQUENCY : DAILY;  14 DAYS ON AND 14 DAYS OFF?
     Route: 048
  2. BISACODYL [Concomitant]
     Active Substance: BISACODYL
  3. CALCIUM\VITAMIN D [Concomitant]
     Active Substance: CALCIUM\VITAMIN D
  4. COLACE [Concomitant]
     Active Substance: DOCUSATE SODIUM
  5. FAMOTIDINE [Concomitant]
     Active Substance: FAMOTIDINE
  6. GABAPENTIN [Concomitant]
     Active Substance: GABAPENTIN
  7. ACETAMINOPHEN\HYDROCODONE [Concomitant]
     Active Substance: ACETAMINOPHEN\HYDROCODONE
  8. IBUPROFEN [Concomitant]
     Active Substance: IBUPROFEN
  9. LETROZOLE [Concomitant]
     Active Substance: LETROZOLE
  10. LIDOCAINE [Concomitant]
     Active Substance: LIDOCAINE
  11. MIRALAX [Concomitant]
     Active Substance: POLYETHYLENE GLYCOL 3350
  12. MORPHINE [Concomitant]
     Active Substance: MORPHINE
  13. VITAMINS [Concomitant]
     Active Substance: VITAMINS
  14. HERBALS [Concomitant]
     Active Substance: HERBALS
  15. ONDANSETRON [Concomitant]
     Active Substance: ONDANSETRON
  16. PANTOPRAZOLE [Concomitant]
     Active Substance: PANTOPRAZOLE
  17. PERCOCET [Concomitant]
     Active Substance: ACETAMINOPHEN\OXYCODONE HYDROCHLORIDE
  18. TRAMADOL [Concomitant]
     Active Substance: TRAMADOL
  19. VITAMIN C [Concomitant]
     Active Substance: ASCORBIC ACID

REACTIONS (1)
  - Disease progression [None]
